FAERS Safety Report 9441740 (Version 1)
Quarter: 2013Q3

REPORT INFORMATION
  Report Type: Spontaneous
  Country: ES (occurrence: ES)
  Receive Date: 20130806
  Receipt Date: 20130806
  Transmission Date: 20140515
  Serious: Yes (Hospitalization)
  Sender: FDA-Public Use
  Company Number: ES-ASTRAZENECA-2013SE58358

PATIENT
  Age: 94 Year
  Sex: Female

DRUGS (6)
  1. ARIMIDEX [Suspect]
     Indication: BREAST CANCER
     Route: 048
     Dates: start: 20120909, end: 20121110
  2. TROMALYT [Suspect]
     Route: 048
     Dates: start: 2004, end: 20121110
  3. SEN [Concomitant]
     Indication: CONSTIPATION
     Dosage: TREATMENT RECEIVED FOR 30 YEARS
     Route: 048
     Dates: start: 1982
  4. FUROSEMIDE [Concomitant]
     Indication: CARDIAC FAILURE CONGESTIVE
     Dosage: TREATMENT RECEIVED FOR 8 YEARS
     Route: 048
     Dates: start: 2004
  5. OMEPRAZOL [Concomitant]
     Indication: PROPHYLAXIS AGAINST GASTROINTESTINAL ULCER
     Route: 048
  6. LANACORDIN [Concomitant]
     Indication: ATRIAL FIBRILLATION
     Dosage: TREATMENT RECEIVED FOR 8 YEARS, 1 VIAL 60 ML DIGOXIN
     Route: 048
     Dates: start: 2004

REACTIONS (1)
  - Thrombocytopenic purpura [Recovered/Resolved]
